FAERS Safety Report 8831039 (Version 1)
Quarter: 2012Q4

REPORT INFORMATION
  Report Type: Spontaneous
  Country: US (occurrence: None)
  Receive Date: 20121005
  Receipt Date: 20121005
  Transmission Date: 20130627
  Serious: Yes (Other)
  Sender: FDA-Public Use
  Company Number: None

PATIENT
  Sex: Male
  Weight: 22.3 kg

DRUGS (2)
  1. KEPPRA [Suspect]
     Indication: EPILEPSY
     Dosage: 3ml BID GT
     Route: 048
     Dates: start: 20120523
  2. KEPPRA [Suspect]
     Indication: CEREBRAL PALSY
     Dosage: 3ml BID GT
     Route: 048
     Dates: start: 20120523

REACTIONS (2)
  - Appetite disorder [None]
  - Convulsion [None]
